FAERS Safety Report 17276924 (Version 1)
Quarter: 2020Q1

REPORT INFORMATION
  Report Type: Spontaneous
  Country: US (occurrence: US)
  Receive Date: 20200115
  Receipt Date: 20200115
  Transmission Date: 20200409
  Serious: Yes (Hospitalization)
  Sender: FDA-Public Use
  Company Number: None

PATIENT
  Age: 50 Year
  Sex: Male

DRUGS (8)
  1. FLUCONAZOLE 200MG [Concomitant]
     Active Substance: FLUCONAZOLE
     Dates: start: 20200102
  2. BIKTARVY [Concomitant]
     Active Substance: BICTEGRAVIR SODIUM\EMTRICITABINE\TENOFOVIR ALAFENAMIDE FUMARATE
     Dates: start: 20191201
  3. AMOXICILLIN-CLAVULANATE 875MG [Concomitant]
     Dates: start: 20200102
  4. LEUCOVORIN 25MG [Concomitant]
     Active Substance: LEUCOVORIN CALCIUM
     Dates: start: 20191127
  5. DARAPRIM [Suspect]
     Active Substance: PYRIMETHAMINE
     Indication: TOXOPLASMOSIS
     Route: 048
     Dates: start: 20191127
  6. AZITHROMYCIN 500MGF [Concomitant]
     Dates: start: 20200112
  7. LEVETIRACETAM 500 [Concomitant]
     Active Substance: LEVETIRACETAM
     Dates: start: 20191127
  8. SULFADIAZINE 500 [Concomitant]
     Dates: start: 20191127

REACTIONS (5)
  - Neutropenia [None]
  - Viral infection [None]
  - Pyrexia [None]
  - Leukopenia [None]
  - Oesophagitis [None]

NARRATIVE: CASE EVENT DATE: 20200112
